FAERS Safety Report 23616721 (Version 2)
Quarter: 2024Q2

REPORT INFORMATION
  Report Type: Spontaneous
  Country: JP (occurrence: JP)
  Receive Date: 20240311
  Receipt Date: 20240422
  Transmission Date: 20240716
  Serious: Yes (Hospitalization)
  Sender: FDA-Public Use
  Company Number: JP-BEH-2024169383

PATIENT
  Age: 65 Year
  Sex: Male

DRUGS (11)
  1. HUMAN IMMUNOGLOBULIN G [Suspect]
     Active Substance: HUMAN IMMUNOGLOBULIN G
     Indication: Chronic inflammatory demyelinating polyradiculoneuropathy
     Route: 065
  2. HIZENTRA [Suspect]
     Active Substance: HUMAN IMMUNOGLOBULIN G
     Indication: Chronic inflammatory demyelinating polyradiculoneuropathy
     Dosage: 120 ML, QW
     Route: 058
     Dates: start: 20230809
  3. ASPIRIN [Concomitant]
     Active Substance: ASPIRIN
     Indication: Angina pectoris
     Dosage: 100 MG, QD
     Route: 048
  4. NAFTOPIDIL [Concomitant]
     Active Substance: NAFTOPIDIL
     Indication: Dysuria
     Dosage: 50 MG, QD
     Route: 048
  5. CASODEX [Concomitant]
     Active Substance: BICALUTAMIDE
     Indication: Prostate cancer
     Dosage: 80 MG, QD
     Route: 048
  6. NALFURAFINE HYDROCHLORIDE [Concomitant]
     Active Substance: NALFURAFINE HYDROCHLORIDE
     Indication: Pruritus
     Dosage: 5 ?G, QD
     Route: 048
  7. NEXIUM [Concomitant]
     Active Substance: ESOMEPRAZOLE MAGNESIUM
     Indication: Prophylaxis
     Dosage: 20 MG, QD
     Route: 048
  8. BIXALOMER [Concomitant]
     Active Substance: BIXALOMER
     Indication: Hyperphosphataemia
     Dosage: 250 MG (6 CAP), TID
     Route: 048
  9. DIETARY SUPPLEMENT\PROBIOTICS [Concomitant]
     Active Substance: DIETARY SUPPLEMENT\PROBIOTICS NOS
     Dosage: 3 DF, TID
     Route: 048
  10. HERBALS [Concomitant]
     Active Substance: HERBALS
     Indication: Dysuria
     Dosage: 3 DF, TID
     Route: 048
  11. PREDONINE [Concomitant]
     Active Substance: PREDNISOLONE
     Indication: Prostate cancer
     Dosage: 5 MG, QD
     Route: 048

REACTIONS (3)
  - Peripheral ischaemia [Recovered/Resolved]
  - Pain [Recovered/Resolved]
  - Product dose omission issue [Recovered/Resolved]

NARRATIVE: CASE EVENT DATE: 20240109
